FAERS Safety Report 25307415 (Version 1)
Quarter: 2025Q2

REPORT INFORMATION
  Report Type: Spontaneous
  Country: CN (occurrence: CN)
  Receive Date: 20250513
  Receipt Date: 20250513
  Transmission Date: 20250717
  Serious: Yes (Hospitalization, Other)
  Sender: SANOFI AVENTIS
  Company Number: CN-SANOFI-02511920

PATIENT
  Sex: Female

DRUGS (3)
  1. TOUJEO [Suspect]
     Active Substance: INSULIN GLARGINE
  2. LANTUS SOLOSTAR [Suspect]
     Active Substance: INSULIN GLARGINE
     Dates: start: 2010
  3. NOVORAPID [Concomitant]
     Active Substance: INSULIN ASPART

REACTIONS (6)
  - Hospitalisation [Unknown]
  - Diabetes mellitus [Unknown]
  - Renal disorder [Unknown]
  - Peripheral swelling [Unknown]
  - Purpura [Unknown]
  - Intentional product misuse [Unknown]
